FAERS Safety Report 9864576 (Version 2)
Quarter: 2014Q1

REPORT INFORMATION
  Report Type: Report from Study
  Country: US (occurrence: US)
  Receive Date: 20140203
  Receipt Date: 20140218
  Transmission Date: 20141002
  Serious: Yes (Hospitalization)
  Sender: FDA-Public Use
  Company Number: US-PFIZER INC-2014025897

PATIENT
  Age: 71 Year
  Sex: Male

DRUGS (25)
  1. IRINOTECAN HCL [Suspect]
     Indication: COLORECTAL CANCER METASTATIC
     Dosage: 165 MG/M2, UNK (1 IN 2 WK)
     Route: 042
     Dates: start: 20131015, end: 20131202
  2. IRINOTECAN HCL [Suspect]
     Dosage: 227 MG (1 IN 2 WK)
     Route: 042
     Dates: start: 20131226
  3. FLUOROURACIL [Suspect]
     Indication: COLORECTAL CANCER METASTATIC
     Dosage: 3200 MG/M2, 2X/WEEK
     Route: 042
     Dates: start: 20131015, end: 20131202
  4. FLUOROURACIL [Suspect]
     Dosage: UNK
     Route: 042
     Dates: start: 20131226
  5. OXALIPLATIN [Suspect]
     Indication: COLORECTAL CANCER METASTATIC
     Dosage: 85 MG/M2, UNK (1 IN 2 WK)
     Route: 042
     Dates: start: 20131015, end: 20131202
  6. OXALIPLATIN [Suspect]
     Dosage: 165 MG (1 IN 2 WK)
     Route: 042
     Dates: start: 20131226
  7. BEVACIZUMAB [Suspect]
     Indication: COLORECTAL CANCER METASTATIC
     Dosage: 5 MG/KG, 1 IN 2 WK
     Route: 042
     Dates: start: 20131015, end: 20131202
  8. BEVACIZUMAB [Suspect]
     Dosage: 400 MG, UNK
     Route: 042
     Dates: start: 20131226
  9. CALCIUM FOLINATE [Suspect]
     Indication: COLORECTAL CANCER METASTATIC
     Dosage: 780 MG,1 IN 2 WK
     Route: 042
     Dates: start: 20131015, end: 20131202
  10. CALCIUM FOLINATE [Suspect]
     Dosage: UNK
     Route: 042
     Dates: start: 20131226
  11. ALFUZOSIN [Concomitant]
     Indication: BENIGN PROSTATIC HYPERPLASIA
     Dosage: 10 MG, DAILY
     Route: 048
     Dates: start: 2008
  12. ATENOLOL [Concomitant]
     Indication: HYPERTENSION
     Dosage: 50 MG, DAILY
     Route: 048
     Dates: start: 2003
  13. AVODART [Concomitant]
     Indication: BENIGN PROSTATIC HYPERPLASIA
     Dosage: 0.5 MG, DAILY
     Route: 048
     Dates: start: 2008
  14. DEXTROAMPHETAMINE [Concomitant]
     Indication: NARCOLEPSY
     Dosage: 10 MG, 3X/DAY
     Route: 048
     Dates: start: 2006
  15. OMEPRAZOLE [Concomitant]
     Indication: GASTROOESOPHAGEAL REFLUX DISEASE
     Dosage: 20 MG, 2X/DAY
     Route: 048
     Dates: start: 2008
  16. OXYCODONE HYDROCHLORIDE W/PARACETAMOL [Concomitant]
     Indication: PAIN
     Dosage: 325/10 MG (AS REQUIRED)
     Route: 048
     Dates: start: 2013
  17. OXYCODONE HYDROCHLORIDE W/PARACETAMOL [Concomitant]
     Indication: NEOPLASM MALIGNANT
  18. TESTOSTERONE CIPIONATE [Concomitant]
     Indication: SUPPLEMENTATION THERAPY
     Dosage: 200 MG/ML (1 ML, 1 IN 2 WK)
     Dates: start: 2007
  19. VYTORIN [Concomitant]
     Indication: BLOOD CHOLESTEROL INCREASED
     Dosage: 80/10 MG (QD)
     Route: 048
     Dates: start: 2003
  20. DHEA [Concomitant]
     Indication: SUPPLEMENTATION THERAPY
     Dosage: 50 MG, DAILY
     Route: 048
     Dates: start: 2001
  21. FISH OIL [Concomitant]
     Indication: SUPPLEMENTATION THERAPY
     Dosage: 1000 MG, 2X/DAY
     Dates: start: 2003
  22. ALANINE [Concomitant]
     Indication: SUPPLEMENTATION THERAPY
     Dosage: 2000 MG, DAILY
     Route: 048
     Dates: start: 2001
  23. VITAMIN B12 [Concomitant]
     Dosage: 1000 UG, 1 IN 3 WK
     Route: 030
     Dates: start: 2005
  24. VITAMIN D3 [Concomitant]
     Indication: SUPPLEMENTATION THERAPY
     Dosage: 5000 U (QD)
     Route: 048
     Dates: start: 2008
  25. VITAMIN E [Concomitant]
     Indication: SUPPLEMENTATION THERAPY
     Dosage: 1000 U (QD)
     Route: 048
     Dates: start: 2001

REACTIONS (2)
  - Dehydration [Not Recovered/Not Resolved]
  - Pneumonia [Not Recovered/Not Resolved]
